FAERS Safety Report 5263022-7 (Version None)
Quarter: 2007Q1

REPORT INFORMATION
  Report Type: 
  Country: None (occurrence: None)
  Receive Date: 20070312
  Receipt Date: 20070206
  Transmission Date: 20070707
  Serious: Yes (Hospitalization)
  Sender: FDA-Public Use
  Company Number: FR-PFIZER INC-2007017442

PATIENT
  Age: 52 Year
  Sex: Female

DRUGS (11)
  1. TRIFLUCAN [Suspect]
     Indication: CANDIDIASIS
     Route: 048
     Dates: start: 20060421, end: 20070102
  2. PREVISCAN [Suspect]
     Indication: DRUG USE FOR UNKNOWN INDICATION
     Dosage: TEXT:1 DF-FREQ:EVERY DAY
     Route: 048
  3. TARGOCID [Suspect]
     Indication: DRUG USE FOR UNKNOWN INDICATION
     Dosage: DAILY DOSE:300MG-FREQ:EVERY DAY
     Route: 042
  4. INIPOMP [Suspect]
     Indication: DRUG USE FOR UNKNOWN INDICATION
     Dosage: DAILY DOSE:20MG-FREQ:EVERY DAY
     Route: 048
  5. RIFADIN [Suspect]
     Indication: DRUG USE FOR UNKNOWN INDICATION
     Route: 048
     Dates: start: 20061220, end: 20070120
  6. CORTANCYL [Suspect]
     Indication: CANDIDIASIS
     Route: 048
  7. INSULIN [Concomitant]
  8. TAREG [Concomitant]
  9. ATARAX [Concomitant]
  10. FORTUM [Concomitant]
  11. TROPICAMIDE [Concomitant]

REACTIONS (1)
  - UVEITIS [None]
